FAERS Safety Report 25768075 (Version 1)
Quarter: 2025Q3

REPORT INFORMATION
  Report Type: Spontaneous
  Country: EU (occurrence: EU)
  Receive Date: 20250905
  Receipt Date: 20250905
  Transmission Date: 20251021
  Serious: Yes (Other)
  Sender: Kenvue
  Company Number: EU-ORPHANEU-2025005867

PATIENT

DRUGS (1)
  1. IBUPROFEN [Suspect]
     Active Substance: IBUPROFEN
     Indication: Product used for unknown indication
     Route: 065

REACTIONS (5)
  - Haemolytic anaemia [Unknown]
  - Neonatal respiratory failure [Recovered/Resolved]
  - Pancytopenia [Recovered/Resolved]
  - Pulmonary oedema neonatal [Recovered/Resolved]
  - Renal impairment neonatal [Recovered/Resolved]
